FAERS Safety Report 6920658-2 (Version None)
Quarter: 2010Q3

REPORT INFORMATION
  Report Type: 
  Country: None (occurrence: None)
  Receive Date: 20100812
  Receipt Date: 20100804
  Transmission Date: 20110219
  Serious: Yes (Hospitalization)
  Sender: FDA-Public Use
  Company Number: PL-BAYER-201032496GPV

PATIENT
  Age: 25 Year
  Sex: Female
  Weight: 57 kg

DRUGS (1)
  1. YAZ [Suspect]
     Indication: PRODUCT USED FOR UNKNOWN INDICATION
     Route: 048
     Dates: start: 20091201, end: 20100321

REACTIONS (5)
  - DYSARTHRIA [None]
  - HEADACHE [None]
  - HEMIPARESIS [None]
  - ISCHAEMIC STROKE [None]
  - MUSCULAR WEAKNESS [None]
